FAERS Safety Report 20701390 (Version 1)
Quarter: 2022Q2

REPORT INFORMATION
  Report Type: Spontaneous
  Country: US (occurrence: None)
  Receive Date: 20220411
  Receipt Date: 20220411
  Transmission Date: 20220721
  Serious: Yes (Hospitalization)
  Sender: FDA-Public Use
  Company Number: None

PATIENT
  Age: 81 Year
  Sex: Female

DRUGS (1)
  1. VERZENIO [Suspect]
     Active Substance: ABEMACICLIB
     Dosage: OTHER QUANTITY : 0000;?OTHER FREQUENCY : OTHER;?
     Route: 048
     Dates: start: 202203, end: 202203

REACTIONS (4)
  - Vomiting [None]
  - Diarrhoea [None]
  - Acute kidney injury [None]
  - Breast cancer metastatic [None]

NARRATIVE: CASE EVENT DATE: 20220314
